APPROVED DRUG PRODUCT: BACITRACIN ZINC AND POLYMYXIN B SULFATE
Active Ingredient: BACITRACIN ZINC; POLYMYXIN B SULFATE
Strength: 500 UNITS/GM;10,000 UNITS/GM
Dosage Form/Route: OINTMENT;OPHTHALMIC
Application: A065022 | Product #001 | TE Code: AT
Applicant: PADAGIS US LLC
Approved: Feb 27, 2002 | RLD: No | RS: No | Type: RX